FAERS Safety Report 24111912 (Version 2)
Quarter: 2024Q3

REPORT INFORMATION
  Report Type: Report from Study
  Country: CA (occurrence: CA)
  Receive Date: 20240718
  Receipt Date: 20240723
  Transmission Date: 20241016
  Serious: Yes (Hospitalization, Other)
  Sender: ABBVIE
  Company Number: CA-ABBVIE-5798500

PATIENT
  Age: 45 Year
  Sex: Female

DRUGS (2)
  1. SKYRIZI [Suspect]
     Active Substance: RISANKIZUMAB-RZAA
     Indication: Crohn^s disease
     Dosage: FORM STRENGTH: 360 MG OBI
     Route: 058
     Dates: start: 20240118
  2. SKYRIZI [Suspect]
     Active Substance: RISANKIZUMAB-RZAA
     Route: 058

REACTIONS (13)
  - Pre-eclampsia [Unknown]
  - Maternal exposure during pregnancy [Unknown]
  - Hypertension [Unknown]
  - Weight decreased [Unknown]
  - Malaise [Unknown]
  - Hyperreflexia [Unknown]
  - Sinus congestion [Unknown]
  - Secretion discharge [Unknown]
  - Cough [Unknown]
  - Gestational hypertension [Unknown]
  - Oropharyngeal pain [Unknown]
  - Live birth [Unknown]
  - Premature delivery [Unknown]

NARRATIVE: CASE EVENT DATE: 20240101
